FAERS Safety Report 22927045 (Version 2)
Quarter: 2025Q3

REPORT INFORMATION
  Report Type: Report from Study
  Country: GB (occurrence: None)
  Receive Date: 20230911
  Receipt Date: 20250924
  Transmission Date: 20251020
  Serious: Yes (Disabling, Other)
  Sender: ORION
  Company Number: GB-002147023-NVSC2022GB029807

PATIENT
  Sex: Male

DRUGS (18)
  1. METHOTREXATE [Suspect]
     Active Substance: METHOTREXATE
     Indication: Product used for unknown indication
     Dates: end: 202306
  2. METHOTREXATE [Suspect]
     Active Substance: METHOTREXATE
     Dates: end: 202306
  3. COSENTYX [Suspect]
     Active Substance: SECUKINUMAB
     Indication: Ankylosing spondylitis
     Dates: start: 2019
  4. COSENTYX [Suspect]
     Active Substance: SECUKINUMAB
  5. COSENTYX [Suspect]
     Active Substance: SECUKINUMAB
  6. COSENTYX [Suspect]
     Active Substance: SECUKINUMAB
  7. COSENTYX [Suspect]
     Active Substance: SECUKINUMAB
  8. COSENTYX [Suspect]
     Active Substance: SECUKINUMAB
  9. COSENTYX [Suspect]
     Active Substance: SECUKINUMAB
     Dates: start: 2020
  10. ALLOPURINOL [Concomitant]
     Active Substance: ALLOPURINOL
  11. BISOPROLOL [Concomitant]
     Active Substance: BISOPROLOL
  12. CITALOPRAM [Concomitant]
     Active Substance: CITALOPRAM
  13. DIGOXIN [Concomitant]
     Active Substance: DIGOXIN
  14. EDOXABAN [Concomitant]
     Active Substance: EDOXABAN
  15. EPLERENONE [Concomitant]
     Active Substance: EPLERENONE
  16. FUROSEMIDE [Concomitant]
     Active Substance: FUROSEMIDE
  17. SACUBITRIL [Concomitant]
     Active Substance: SACUBITRIL
  18. TRAMADOL [Concomitant]
     Active Substance: TRAMADOL

REACTIONS (11)
  - Neck pain [Recovered/Resolved]
  - Musculoskeletal stiffness [Recovered/Resolved]
  - Ankylosing spondylitis [Recovering/Resolving]
  - Sensitivity to weather change [Recovered/Resolved]
  - Pain [Not Recovered/Not Resolved]
  - Drug ineffective [Recovering/Resolving]
  - Fatigue [Not Recovered/Not Resolved]
  - Psoriasis [Not Recovered/Not Resolved]
  - Dyspnoea exertional [Not Recovered/Not Resolved]
  - Decubitus ulcer [Recovering/Resolving]
  - Back pain [Not Recovered/Not Resolved]

NARRATIVE: CASE EVENT DATE: 20211201
